FAERS Safety Report 9220343 (Version 1)
Quarter: 2013Q1

REPORT INFORMATION
  Report Type: Spontaneous
  Country: US (occurrence: None)
  Receive Date: 20120831
  Receipt Date: 20120831
  Transmission Date: 20140127
  Serious: No
  Sender: FDA-Public Use
  Company Number: 1000031135

PATIENT
  Sex: Male

DRUGS (1)
  1. DALIRESP [Suspect]
     Route: 048

REACTIONS (1)
  - Confusional state [None]
